FAERS Safety Report 10236078 (Version 1)
Quarter: 2014Q1

REPORT INFORMATION
  Report Type: Spontaneous
  Country: US (occurrence: None)
  Receive Date: 20140306
  Receipt Date: 20140306
  Transmission Date: 20141002
  Serious: Yes (Hospitalization, Other)
  Sender: FDA-Public Use
  Company Number: 163-21880-13103197

PATIENT
  Age: 79 Year
  Sex: Female
  Weight: 66.7 kg

DRUGS (5)
  1. REVLIMID (LENALIDOMIDE) (10 MILLIGRAM, CAPSULES) [Suspect]
     Indication: PLASMA CELL MYELOMA
     Dosage: 21 IN 28 D
     Route: 048
     Dates: start: 20130824
  2. FOLIC ACID (FOLIC ACID) (UNKNOWN) [Concomitant]
  3. COMPLETE MULTIVITAMIN (MULTIVITAMNINS) (UNKNOWN) [Concomitant]
  4. VITAMIN B12 (CYANOCOBALAMIN) (UNKNOWN) [Concomitant]
  5. VITAMIN B6 (PYROXINE HYDROCHLORIDE) (UNIKNOWN) [Concomitant]

REACTIONS (5)
  - Thrombosis [None]
  - Malaise [None]
  - Pulmonary embolism [None]
  - Rash [None]
  - Deep vein thrombosis [None]
